FAERS Safety Report 19085772 (Version 1)
Quarter: 2021Q2

REPORT INFORMATION
  Report Type: Other
  Country: US (occurrence: US)
  Receive Date: 20210402
  Receipt Date: 20210402
  Transmission Date: 20210717
  Serious: Yes (Hospitalization, Other)
  Sender: FDA-Public Use
  Company Number: US-INNOGENIX, LLC-2108825

PATIENT
  Age: 64 Year
  Sex: Female

DRUGS (1)
  1. PILOCARPINE HYDROCHLORIDE. [Suspect]
     Active Substance: PILOCARPINE HYDROCHLORIDE
     Indication: PRODUCT USED FOR UNKNOWN INDICATION
     Route: 048

REACTIONS (6)
  - Lactic acidosis [Recovered/Resolved]
  - Respiratory failure [Recovered/Resolved]
  - Cholinergic syndrome [Recovered/Resolved]
  - Increased bronchial secretion [Recovered/Resolved]
  - Intentional overdose [Unknown]
  - Hypokalaemia [Recovered/Resolved]
